FAERS Safety Report 14661524 (Version 4)
Quarter: 2018Q4

REPORT INFORMATION
  Report Type: Report from Study
  Country: US (occurrence: US)
  Receive Date: 20180320
  Receipt Date: 20181109
  Transmission Date: 20190204
  Serious: Yes (Hospitalization)
  Sender: FDA-Public Use
  Company Number: US-ACTELION-A-NJ2016-135047

PATIENT
  Age: 29 Year
  Sex: Female

DRUGS (2)
  1. CHLORHEXIDINE [Suspect]
     Active Substance: CHLORHEXIDINE
     Indication: PRODUCT USED FOR UNKNOWN INDICATION
     Route: 065
  2. OPSUMIT [Suspect]
     Active Substance: MACITENTAN
     Indication: PULMONARY ARTERIAL HYPERTENSION
     Dosage: 10 MG, QD
     Route: 048
     Dates: start: 20151124

REACTIONS (11)
  - Hypersensitivity [Recovered/Resolved]
  - Device related infection [Recovered/Resolved]
  - Rash [Recovered/Resolved]
  - Pulmonary hypertension [Unknown]
  - Nasal congestion [Not Recovered/Not Resolved]
  - Peripheral swelling [Unknown]
  - Staphylococcal infection [Recovered/Resolved]
  - Catheter site injury [Recovered/Resolved]
  - Dizziness [Not Recovered/Not Resolved]
  - Device damage [Recovered/Resolved]
  - Pain in extremity [Unknown]

NARRATIVE: CASE EVENT DATE: 20151124
